FAERS Safety Report 11454552 (Version 3)
Quarter: 2016Q3

REPORT INFORMATION
  Report Type: Report from Study
  Country: JP (occurrence: JP)
  Receive Date: 20150903
  Receipt Date: 20160927
  Transmission Date: 20161109
  Serious: Yes (Hospitalization)
  Sender: FDA-Public Use
  Company Number: JP-SA-2015SA132369

PATIENT
  Age: 11 Year
  Sex: Male
  Weight: 54.6 kg

DRUGS (18)
  1. ENDOXAN [Suspect]
     Active Substance: CYCLOPHOSPHAMIDE
     Indication: BONE MARROW CONDITIONING REGIMEN
     Route: 042
     Dates: start: 20120407, end: 20120410
  2. BACCIDAL [Concomitant]
     Active Substance: NORFLOXACIN
     Indication: INFECTION PROPHYLAXIS
     Dates: start: 20120405, end: 20120502
  3. KENKETSU VENILON [Concomitant]
     Indication: PROPHYLAXIS
     Dates: start: 20120412, end: 20120607
  4. RITUXAN [Concomitant]
     Active Substance: RITUXIMAB
     Indication: PROPHYLAXIS
     Dates: start: 20120405, end: 20120405
  5. FLUDARA [Suspect]
     Active Substance: FLUDARABINE PHOSPHATE
     Indication: BONE MARROW CONDITIONING REGIMEN
     Dosage: DOSE:37 MG/BODY/DAY
     Route: 042
     Dates: start: 20120407, end: 20120410
  6. CHLOR-TRIMETON [Concomitant]
     Active Substance: CHLORPHENIRAMINE MALEATE
     Indication: PROPHYLAXIS
     Dates: start: 20120407, end: 20120410
  7. FUNGUARD [Concomitant]
     Active Substance: MICAFUNGIN SODIUM
     Indication: ANTIFUNGAL PROPHYLAXIS
     Route: 042
     Dates: start: 20120411, end: 20120522
  8. ZOVIRAX [Concomitant]
     Active Substance: ACYCLOVIR
     Indication: ANTIVIRAL PROPHYLAXIS
     Dates: start: 20120405, end: 20120523
  9. THYMOGLOBULINE [Suspect]
     Active Substance: LAPINE T-LYMPHOCYTE IMMUNE GLOBULIN
     Indication: BONE MARROW CONDITIONING REGIMEN
     Dosage: OVER 14 HOURS,
     Route: 042
     Dates: start: 20120407, end: 20120407
  10. UROMITEXAN [Concomitant]
     Active Substance: MESNA
     Indication: BONE MARROW TRANSPLANT
     Dates: start: 20120407, end: 20120410
  11. MANNITOL. [Concomitant]
     Active Substance: MANNITOL
     Indication: PROPHYLAXIS
     Dates: start: 20120407, end: 20120411
  12. THYMOGLOBULINE [Suspect]
     Active Substance: LAPINE T-LYMPHOCYTE IMMUNE GLOBULIN
     Indication: BONE MARROW CONDITIONING REGIMEN
     Dosage: 12 HOURS AND A HALF.
     Route: 042
     Dates: start: 20120410, end: 20120410
  13. SOLU-MEDROL [Concomitant]
     Active Substance: METHYLPREDNISOLONE SODIUM SUCCINATE
     Indication: PROPHYLAXIS
     Dates: start: 20120407, end: 20120410
  14. THYMOGLOBULINE [Suspect]
     Active Substance: LAPINE T-LYMPHOCYTE IMMUNE GLOBULIN
     Indication: BONE MARROW CONDITIONING REGIMEN
     Dosage: 12 HOURS AND A HALF.
     Route: 042
     Dates: start: 20120408, end: 20120408
  15. NEUTROGIN [Concomitant]
     Active Substance: LENOGRASTIM
     Dates: start: 20120417, end: 20120504
  16. THYMOGLOBULINE [Suspect]
     Active Substance: LAPINE T-LYMPHOCYTE IMMUNE GLOBULIN
     Indication: BONE MARROW CONDITIONING REGIMEN
     Dosage: 12 HOURS AND A HALF.
     Route: 042
     Dates: start: 20120409, end: 20120409
  17. PROGRAF [Suspect]
     Active Substance: TACROLIMUS\TACROLIMUS ANHYDROUS
     Indication: PROPHYLAXIS AGAINST GRAFT VERSUS HOST DISEASE
     Route: 048
     Dates: start: 20120522, end: 20120622
  18. PROGRAF [Concomitant]
     Active Substance: TACROLIMUS\TACROLIMUS ANHYDROUS
     Indication: PROPHYLAXIS AGAINST GRAFT VERSUS HOST DISEASE
     Route: 042
     Dates: start: 20120411, end: 20120521

REACTIONS (4)
  - Engraftment syndrome [Recovered/Resolved]
  - Febrile neutropenia [Recovered/Resolved]
  - Pyrexia [Recovered/Resolved]
  - Pyrexia [Recovered/Resolved]

NARRATIVE: CASE EVENT DATE: 20120407
